FAERS Safety Report 17939531 (Version 2)
Quarter: 2020Q3

REPORT INFORMATION
  Report Type: Spontaneous
  Country: US (occurrence: US)
  Receive Date: 20200624
  Receipt Date: 20200826
  Transmission Date: 20201103
  Serious: Yes (Other)
  Sender: FDA-Public Use
  Company Number: US-BAYER-2020-122202

PATIENT
  Age: 30 Year

DRUGS (2)
  1. KOGENATE FS [Suspect]
     Active Substance: ANTIHEMOPHILIC FACTOR, HUMAN RECOMBINANT
     Dosage: 1930 IU, QD
     Route: 042
  2. KOGENATE FS [Suspect]
     Active Substance: ANTIHEMOPHILIC FACTOR, HUMAN RECOMBINANT
     Dosage: PATIENT HAS USED 8 DOSES AS TREATMENT
     Route: 042
     Dates: start: 20200613

REACTIONS (1)
  - Wrist fracture [Recovered/Resolved]

NARRATIVE: CASE EVENT DATE: 20200613
